FAERS Safety Report 9638884 (Version 1)
Quarter: 2013Q4

REPORT INFORMATION
  Report Type: Spontaneous
  Country: US (occurrence: US)
  Receive Date: 20131022
  Receipt Date: 20131022
  Transmission Date: 20140711
  Serious: No
  Sender: FDA-Public Use
  Company Number: US-BRISTOL-MYERS SQUIBB COMPANY-19123140

PATIENT
  Age: 64 Year
  Sex: Female

DRUGS (2)
  1. ELIQUIS [Suspect]
  2. LISINOPRIL [Suspect]
     Dosage: RED TO 2.5MG

REACTIONS (2)
  - Orthostatic hypotension [Unknown]
  - Fall [Unknown]
